FAERS Safety Report 9378820 (Version 1)
Quarter: 2013Q3

REPORT INFORMATION
  Report Type: Spontaneous
  Country: JP (occurrence: JP)
  Receive Date: 20130702
  Receipt Date: 20130702
  Transmission Date: 20140515
  Serious: Yes (Hospitalization)
  Sender: FDA-Public Use
  Company Number: JP-ROCHE-1243737

PATIENT
  Age: 32 Year
  Sex: Male
  Weight: 79 kg

DRUGS (2)
  1. PEGASYS [Suspect]
     Indication: CHRONIC HEPATITIS B
     Route: 058
     Dates: start: 20130402, end: 20130515
  2. PEGASYS [Suspect]
     Indication: CHRONIC HEPATITIS B
     Route: 058
     Dates: start: 20130522, end: 20130528

REACTIONS (2)
  - Liver disorder [Recovered/Resolved]
  - Rash [Unknown]
